FAERS Safety Report 7624331-7 (Version None)
Quarter: 2011Q3

REPORT INFORMATION
  Report Type: 
  Country: None (occurrence: None)
  Receive Date: 20110720
  Receipt Date: 20110711
  Transmission Date: 20111222
  Serious: Yes (Life-Threatening, Hospitalization, Other)
  Sender: FDA-Public Use
  Company Number: US-BAYER-201032495NA

PATIENT
  Age: 42 Year
  Sex: Female
  Weight: 49.887 kg

DRUGS (13)
  1. PROAIR HFA [Concomitant]
  2. ZOFRAN [Concomitant]
  3. YAZ [Suspect]
     Indication: CONTRACEPTION
     Dosage: UNK UNK, UNK
     Route: 065
     Dates: start: 20070101, end: 20091001
  4. YAZ [Suspect]
     Indication: ACNE
  5. YAZ [Suspect]
     Indication: PREMENSTRUAL SYNDROME
  6. ALBUTEROL SULFATE AUTOHALER [Concomitant]
  7. NAPROXEN [Concomitant]
  8. YASMIN [Suspect]
     Indication: PREMENSTRUAL SYNDROME
  9. WELLBUTRIN [Concomitant]
  10. YASMIN [Suspect]
     Indication: ACNE
  11. YASMIN [Suspect]
     Indication: CONTRACEPTION
     Dosage: UNK UNK, UNK
     Route: 065
     Dates: start: 20040101, end: 20050201
  12. AMBIEN [Concomitant]
  13. DILAUDID [Concomitant]

REACTIONS (7)
  - CHOLELITHIASIS [None]
  - GALLBLADDER NON-FUNCTIONING [None]
  - ORGAN FAILURE [None]
  - PANCREATITIS [None]
  - PAIN [None]
  - GENERAL PHYSICAL HEALTH DETERIORATION [None]
  - ANXIETY [None]
